FAERS Safety Report 11222622 (Version 1)
Quarter: 2015Q2

REPORT INFORMATION
  Report Type: Spontaneous
  Country: US (occurrence: US)
  Receive Date: 20150626
  Receipt Date: 20150626
  Transmission Date: 20150821
  Serious: Yes (Other)
  Sender: FDA-Public Use
  Company Number: US-BAYER-2015-357054

PATIENT
  Sex: Female

DRUGS (2)
  1. MIRENA [Suspect]
     Active Substance: LEVONORGESTREL
     Dosage: 20 MCG/24HR, CONT
     Route: 015
     Dates: start: 20090303, end: 20120727
  2. MIRENA [Suspect]
     Active Substance: LEVONORGESTREL
     Dosage: 20 MCG/24HR, CONT
     Route: 015
     Dates: start: 20110302, end: 20120727

REACTIONS (12)
  - Pregnancy with contraceptive device [None]
  - Device use error [None]
  - Abdominal pain [None]
  - Anxiety [None]
  - Drug ineffective [None]
  - Procedural pain [None]
  - Device dislocation [None]
  - Vaginal haemorrhage [None]
  - Injury [None]
  - Device dislocation [None]
  - Medical device pain [None]
  - Embedded device [None]

NARRATIVE: CASE EVENT DATE: 20100512
